FAERS Safety Report 7964229-8 (Version None)
Quarter: 2011Q4

REPORT INFORMATION
  Report Type: 
  Country: None (occurrence: None)
  Receive Date: 20111121
  Receipt Date: 20110906
  Transmission Date: 20120403
  Serious: No
  Sender: FDA-Public Use
  Company Number: 1000023624

PATIENT
  Age: 78 Year
  Sex: Male

DRUGS (9)
  1. GLIPIZIDE [Concomitant]
  2. ZYPREXA [Concomitant]
  3. TAZTIA XT (DILTIAZEM HYDROCHLORIDE) (DILTIAZEM HYDROCHLORIDE) [Concomitant]
  4. ADVAIR (FLUTICASONE) (FLUTICASONE) [Concomitant]
  5. LEVOTHYROXINE (LEVOTHYROXINE SODIUM) (LEVOTHYROXINE SODIUM) [Concomitant]
  6. VIIBRYD [Suspect]
     Indication: DEPRESSION
     Dosage: 10 MG (10 MG,1 IN 1 D),ORAL
     Route: 048
     Dates: start: 20110901
  7. METFORMIN HCL [Concomitant]
  8. DIGOXIN [Concomitant]
  9. LORAZEPAM [Concomitant]

REACTIONS (4)
  - DIARRHOEA [None]
  - MUSCLE TIGHTNESS [None]
  - INSOMNIA [None]
  - HEADACHE [None]
